FAERS Safety Report 16754843 (Version 1)
Quarter: 2019Q3

REPORT INFORMATION
  Report Type: Report from Study
  Country: ZA (occurrence: ZA)
  Receive Date: 20190829
  Receipt Date: 20190829
  Transmission Date: 20191005
  Serious: Yes (Hospitalization, Other)
  Sender: FDA-Public Use
  Company Number: ZA-MYLANLABS-2019M1081032

PATIENT
  Sex: Male

DRUGS (4)
  1. EFAVIRENZ. [Suspect]
     Active Substance: EFAVIRENZ
     Indication: HIV INFECTION
     Dosage: 2-WEEK PERIOD BEFORE THE ADMISSION
     Route: 065
  2. EFAVIRENZ. [Suspect]
     Active Substance: EFAVIRENZ
     Dosage: 650 MILLIGRAM, QD
     Route: 065
  3. STAVUDINE. [Concomitant]
     Active Substance: STAVUDINE
     Indication: HIV INFECTION
     Dosage: UNK
     Route: 065
  4. LAMIVUDINE. [Concomitant]
     Active Substance: LAMIVUDINE
     Indication: HIV INFECTION
     Dosage: UNK
     Route: 065

REACTIONS (9)
  - Accidental overdose [Unknown]
  - Somnolence [Recovered/Resolved]
  - Neuropsychiatric symptoms [Unknown]
  - Generalised tonic-clonic seizure [Recovered/Resolved]
  - Incorrect dose administered [Unknown]
  - Dysarthria [Recovered/Resolved]
  - Cognitive disorder [Unknown]
  - Toxicity to various agents [Unknown]
  - Ataxia [Recovered/Resolved]
